FAERS Safety Report 9612551 (Version 4)
Quarter: 2014Q1

REPORT INFORMATION
  Report Type: Spontaneous
  Country: JP (occurrence: JP)
  Receive Date: 20131010
  Receipt Date: 20140307
  Transmission Date: 20141002
  Serious: Yes (Death, Life-Threatening)
  Sender: FDA-Public Use
  Company Number: JP-ACTELION-A-CH2013-89362

PATIENT
  Age: 75 Year
  Sex: Female
  Weight: 52.7 kg

DRUGS (12)
  1. TRACLEER [Suspect]
     Indication: PULMONARY ARTERIAL HYPERTENSION
     Dosage: 62.5 MG, BID
     Route: 048
     Dates: start: 20130821, end: 20130916
  2. BERAPROST SODIUM [Concomitant]
  3. ETHYL ICOSAPENTATE [Concomitant]
  4. TRAMADOL HYDROCHLORIDE AND ACETAMINOPHEN [Concomitant]
  5. ISOSORBIDE DINITRATE [Concomitant]
  6. DILTIAZEM HYDROCHLORIDE [Concomitant]
  7. ASPIRIN [Concomitant]
  8. PREDNISOLONE [Concomitant]
  9. BISOPROLOL FUMARATE [Concomitant]
  10. FUROSEMIDE [Concomitant]
  11. SPIRONOLACTONE [Concomitant]
  12. OXYGEN [Concomitant]

REACTIONS (3)
  - Interstitial lung disease [Fatal]
  - Respiratory distress [Fatal]
  - Dermatomyositis [Fatal]
